FAERS Safety Report 10032908 (Version 1)
Quarter: 2014Q1

REPORT INFORMATION
  Report Type: Spontaneous
  Country: US (occurrence: US)
  Receive Date: 20140324
  Receipt Date: 20140324
  Transmission Date: 20141002
  Serious: No
  Sender: FDA-Public Use
  Company Number: US-PFIZER INC-2014082342

PATIENT
  Sex: Female

DRUGS (2)
  1. PRISTIQ [Suspect]
     Dosage: 100 MG, UNK
     Route: 048
  2. LAMICTAL [Concomitant]
     Dosage: UNK

REACTIONS (2)
  - Influenza [Unknown]
  - Diarrhoea [Unknown]
